FAERS Safety Report 6585659-5 (Version None)
Quarter: 2010Q1

REPORT INFORMATION
  Report Type: 
  Country: None (occurrence: None)
  Receive Date: 20100217
  Receipt Date: 20100205
  Transmission Date: 20100710
  Serious: Yes (Other)
  Sender: FDA-Public Use
  Company Number: US-PFIZER INC-2010017116

PATIENT
  Sex: Female
  Weight: 73.028 kg

DRUGS (1)
  1. CHANTIX [Suspect]
     Dosage: 1 MG, 2X/DAY
     Dates: start: 20100128

REACTIONS (5)
  - DRUG WITHDRAWAL SYNDROME [None]
  - HYPOVENTILATION [None]
  - PALPITATIONS [None]
  - PANIC ATTACK [None]
  - THROAT TIGHTNESS [None]
